FAERS Safety Report 15404712 (Version 2)
Quarter: 2018Q4

REPORT INFORMATION
  Report Type: Report from Study
  Country: None (occurrence: US)
  Receive Date: 20180919
  Receipt Date: 20181101
  Transmission Date: 20190204
  Serious: No
  Sender: FDA-Public Use
  Company Number: US-ABBVIE-18K-163-2489291-00

PATIENT
  Age: 78 Year
  Sex: Male

DRUGS (1)
  1. HUMIRA [Suspect]
     Active Substance: ADALIMUMAB
     Indication: RHEUMATOID ARTHRITIS
     Route: 058
     Dates: start: 20180903

REACTIONS (4)
  - Dyspnoea [Unknown]
  - Oxygen saturation decreased [Unknown]
  - Heart rate increased [Unknown]
  - Exposure to contaminated air [Recovered/Resolved]

NARRATIVE: CASE EVENT DATE: 201809
